FAERS Safety Report 8374438-4 (Version None)
Quarter: 2012Q2

REPORT INFORMATION
  Report Type: 
  Country: None (occurrence: None)
  Receive Date: 20120521
  Receipt Date: 20120507
  Transmission Date: 20120825
  Serious: Yes (Other)
  Sender: FDA-Public Use
  Company Number: DE-JNJFOC-20120407920

PATIENT
  Age: 52 Year
  Sex: Female

DRUGS (4)
  1. REMICADE [Suspect]
     Indication: CROHN'S DISEASE
     Route: 042
     Dates: start: 20120304, end: 20120304
  2. CORTISONE ACETATE [Concomitant]
     Indication: CROHN'S DISEASE
     Dosage: 2 WEEKS; 6 YEARS
     Route: 065
  3. CORTISONE ACETATE [Concomitant]
     Indication: PREMEDICATION
     Dosage: 2 WEEKS; 6 YEARS
     Route: 065
  4. REMICADE [Suspect]
     Route: 042
     Dates: start: 20110101

REACTIONS (7)
  - PALPITATIONS [None]
  - FACE OEDEMA [None]
  - DYSPNOEA [None]
  - FLUSHING [None]
  - INFUSION RELATED REACTION [None]
  - HYPOTENSION [None]
  - TACHYCARDIA [None]
